FAERS Safety Report 4721687-X (Version None)
Quarter: 2005Q3

REPORT INFORMATION
  Report Type: 
  Country: None (occurrence: None)
  Receive Date: 20050721
  Receipt Date: 20050224
  Transmission Date: 20060218
  Serious: Yes (Hospitalization, Other)
  Sender: FDA-Public Use
  Company Number: US-BRISTOL-MYERS SQUIBB COMPANY-12875084

PATIENT
  Age: 72 Year
  Sex: Female
  Weight: 78 kg

DRUGS (10)
  1. COUMADIN [Suspect]
     Indication: THROMBOSIS
     Dosage: 2.5 MG ONCE DAILY ON MON., WED. AND FRI. AND 5 MP DAILY ON TUES.,THURS., SAT. AND SUN.
     Route: 048
     Dates: start: 20021210
  2. ADVAIR DISKUS 100/50 [Concomitant]
     Dates: end: 20050101
  3. AVAPRO [Concomitant]
  4. OXYCONTIN [Concomitant]
     Dosage: ONGOING ^FOR YEARS^
  5. PREVACID [Concomitant]
     Dates: end: 20041201
  6. PROTONIX [Concomitant]
  7. LASIX [Concomitant]
  8. POTASSIUM CHLORIDE [Concomitant]
  9. NEURONTIN [Concomitant]
  10. QUINIDINE HCL [Concomitant]

REACTIONS (4)
  - HYPERSENSITIVITY [None]
  - INTERNATIONAL NORMALISED RATIO INCREASED [None]
  - PRURITUS [None]
  - URTICARIA [None]
